FAERS Safety Report 18543453 (Version 7)
Quarter: 2021Q4

REPORT INFORMATION
  Report Type: Spontaneous
  Country: BR (occurrence: BR)
  Receive Date: 20201124
  Receipt Date: 20211020
  Transmission Date: 20220304
  Serious: Yes (Other)
  Sender: FDA-Public Use
  Company Number: BR-TAKEDA-2020TUS051090

PATIENT
  Sex: Female

DRUGS (4)
  1. LISDEXAMFETAMINE DIMESYLATE [Suspect]
     Active Substance: LISDEXAMFETAMINE DIMESYLATE
     Indication: Product used for unknown indication
     Dosage: UNK
     Route: 065
  2. METHYLPHENIDATE HYDROCHLORIDE [Suspect]
     Active Substance: METHYLPHENIDATE HYDROCHLORIDE
     Indication: Product used for unknown indication
     Dosage: 10 MILLIGRAM
     Route: 065
  3. PARNATE [Suspect]
     Active Substance: TRANYLCYPROMINE SULFATE
     Indication: Product used for unknown indication
     Dosage: 40 MILLIGRAM
     Route: 065
  4. AMITRIPTYLINE [Concomitant]
     Active Substance: AMITRIPTYLINE
     Route: 065

REACTIONS (12)
  - Serotonin syndrome [Recovering/Resolving]
  - Cardiac disorder [Unknown]
  - Renal impairment [Unknown]
  - Neoplasm [Unknown]
  - Depressed mood [Unknown]
  - Supine hypertension [Unknown]
  - Anxiety [Unknown]
  - Suicidal ideation [Unknown]
  - Euphoric mood [Unknown]
  - Hypomania [Unknown]
  - Drug hypersensitivity [Unknown]
  - Neurotransmitter level altered [Unknown]
